FAERS Safety Report 15416168 (Version 2)
Quarter: 2018Q4

REPORT INFORMATION
  Report Type: Spontaneous
  Country: US (occurrence: US)
  Receive Date: 20180923
  Receipt Date: 20181023
  Transmission Date: 20190204
  Serious: No
  Sender: FDA-Public Use
  Company Number: US-GLAXOSMITHKLINE-US2018167938

PATIENT
  Age: 65 Year
  Sex: Female

DRUGS (1)
  1. BREO ELLIPTA [Suspect]
     Active Substance: FLUTICASONE FUROATE\VILANTEROL TRIFENATATE
     Indication: ASTHMA
     Dosage: 1 PUFF(S), 1D
     Route: 055
     Dates: start: 20180801

REACTIONS (9)
  - Dysphonia [Unknown]
  - Oral pain [Unknown]
  - Oropharyngeal discomfort [Unknown]
  - Wrong technique in device usage process [Recovered/Resolved]
  - Eating disorder [Unknown]
  - Lip swelling [Unknown]
  - Lip blister [Unknown]
  - Product dose omission [Unknown]
  - Ill-defined disorder [Unknown]

NARRATIVE: CASE EVENT DATE: 20180801
